FAERS Safety Report 12727013 (Version 2)
Quarter: 2016Q4

REPORT INFORMATION
  Report Type: Spontaneous
  Country: CA (occurrence: CA)
  Receive Date: 20160909
  Receipt Date: 20161011
  Transmission Date: 20170207
  Serious: Yes (Other)
  Sender: FDA-Public Use
  Company Number: CA-ORION CORPORATION ORION PHARMA-TREX2016-1662

PATIENT
  Age: 62 Year
  Sex: Female

DRUGS (9)
  1. METHOTREXATE (TRADE NAME UNKNOWN) [Suspect]
     Active Substance: METHOTREXATE
     Indication: RHEUMATOID ARTHRITIS
     Route: 065
  2. APO-LEFLUNOMIDE [Concomitant]
     Active Substance: LEFLUNOMIDE
     Route: 065
  3. RATIO-METFORMIN [Concomitant]
     Active Substance: METFORMIN HYDROCHLORIDE
     Route: 065
  4. MOTRIN [Concomitant]
     Active Substance: IBUPROFEN
     Route: 065
  5. JANUVIA [Concomitant]
     Active Substance: SITAGLIPTIN PHOSPHATE
     Route: 065
  6. PMS-HYDROMORPHONE [Concomitant]
     Active Substance: HYDROMORPHONE HYDROCHLORIDE
     Route: 065
  7. ALEVE [Concomitant]
     Active Substance: NAPROXEN SODIUM
     Route: 065
  8. CELECOXIB. [Suspect]
     Active Substance: CELECOXIB
     Route: 065
  9. CYMBALTA [Concomitant]
     Active Substance: DULOXETINE HYDROCHLORIDE
     Route: 065

REACTIONS (5)
  - Rheumatoid arthritis [Unknown]
  - Colon cancer [Recovered/Resolved]
  - Cataract [Unknown]
  - Eye disorder [Unknown]
  - Hepatic cancer [Recovered/Resolved]
